FAERS Safety Report 5343748-7 (Version None)
Quarter: 2007Q2

REPORT INFORMATION
  Report Type: 
  Country: None (occurrence: None)
  Receive Date: 20070531
  Receipt Date: 20070521
  Transmission Date: 20071010
  Serious: Yes (Other)
  Sender: FDA-Public Use
  Company Number: 07H-163-0312652-00

PATIENT
  Age: 21 Year
  Sex: Female

DRUGS (7)
  1. A-METHOPRED INJECTION (METHYLPREDNISOLONE SODIUM SUCCINATE) (METHYLPRE [Suspect]
     Indication: MIGRAINE
     Dosage: 200 MG, EVERY 112 HOURS, INTRAVENOUS
     Route: 042
  2. DEXAMETHASONE TAB [Suspect]
     Indication: MIGRAINE
     Dosage: SEE IMAGE
  3. DIHYDROERGOTAMINE MESYLATE [Concomitant]
  4. SUMATRIPTAN SUCCINATE [Concomitant]
  5. NORTRIPTYLINE HCL [Concomitant]
  6. GABAPENTIN [Concomitant]
  7. CORTICOSTEROIDS (CORTICOSTEROIDS) [Concomitant]

REACTIONS (3)
  - ARTHRALGIA [None]
  - JOINT SWELLING [None]
  - OSTEONECROSIS [None]
